FAERS Safety Report 10486173 (Version 2)
Quarter: 2014Q4

REPORT INFORMATION
  Report Type: Spontaneous
  Country: FR (occurrence: FR)
  Receive Date: 20141001
  Receipt Date: 20141001
  Transmission Date: 20150528
  Serious: Yes (Other)
  Sender: FDA-Public Use
  Company Number: FR-JNJFOC-20140901174

PATIENT
  Age: 25 Year
  Sex: Male

DRUGS (3)
  1. XEPLION [Suspect]
     Active Substance: PALIPERIDONE PALMITATE
     Indication: DELIRIUM
     Route: 030
     Dates: end: 20140820
  2. XEPLION [Suspect]
     Active Substance: PALIPERIDONE PALMITATE
     Indication: DELIRIUM
     Route: 030
     Dates: start: 20140806
  3. XEPLION [Suspect]
     Active Substance: PALIPERIDONE PALMITATE
     Indication: DELIRIUM
     Route: 030
     Dates: start: 20140731

REACTIONS (7)
  - Product use issue [Unknown]
  - Drug intolerance [Recovered/Resolved]
  - Somnolence [Recovered/Resolved]
  - Depression [Recovered/Resolved]
  - Myalgia [Recovered/Resolved]
  - Headache [Recovered/Resolved]
  - Fatigue [Recovered/Resolved]

NARRATIVE: CASE EVENT DATE: 201408
